FAERS Safety Report 7193335-3 (Version None)
Quarter: 2010Q4

REPORT INFORMATION
  Report Type: 
  Country: None (occurrence: None)
  Receive Date: 20101223
  Receipt Date: 20101220
  Transmission Date: 20110411
  Serious: Yes (Hospitalization)
  Sender: FDA-Public Use
  Company Number: US-US-EMD SERONO, INC.-7022115

PATIENT
  Sex: Male

DRUGS (7)
  1. REBIF [Suspect]
     Indication: PRODUCT USED FOR UNKNOWN INDICATION
     Route: 058
     Dates: start: 20100830
  2. POLYGAM [Concomitant]
  3. UNSPECIFIED MEDICATION [Concomitant]
     Indication: PREMEDICATION
  4. PERCOCET [Concomitant]
  5. BACLOFEN [Concomitant]
  6. LYRICA [Concomitant]
  7. DIAZEPAM [Concomitant]

REACTIONS (10)
  - ASTHENIA [None]
  - BONE PAIN [None]
  - CENTRAL NERVOUS SYSTEM LESION [None]
  - CHILLS [None]
  - FATIGUE [None]
  - HEADACHE [None]
  - HYPOAESTHESIA [None]
  - PAIN [None]
  - PAIN IN EXTREMITY [None]
  - RHINORRHOEA [None]
